FAERS Safety Report 5505807-5 (Version None)
Quarter: 2007Q4

REPORT INFORMATION
  Report Type: 
  Country: None (occurrence: None)
  Receive Date: 20071102
  Receipt Date: 20071031
  Transmission Date: 20080405
  Serious: Yes (Other)
  Sender: FDA-Public Use
  Company Number: US-BOEHRINGER INGELHEIM PHARMACEUTICALS, INC.-2007-BP-21228BP

PATIENT
  Sex: Male

DRUGS (8)
  1. MIRAPEX [Suspect]
     Indication: PARKINSON'S DISEASE
     Route: 048
     Dates: start: 20031101, end: 20050101
  2. MIRAPEX [Suspect]
     Route: 048
     Dates: start: 20070601
  3. LODOSYN [Concomitant]
     Indication: PARKINSON'S DISEASE
  4. CARBIDOPA ER [Concomitant]
     Indication: PARKINSON'S DISEASE
  5. PARCOPA [Concomitant]
     Indication: PARKINSON'S DISEASE
  6. AMANTADINE HCL [Concomitant]
     Indication: PARKINSON'S DISEASE
  7. AZILECT [Concomitant]
  8. LORAZEPAM [Concomitant]

REACTIONS (5)
  - ECONOMIC PROBLEM [None]
  - GAMBLING [None]
  - PAIN [None]
  - STOMACH DISCOMFORT [None]
  - SUICIDE ATTEMPT [None]
